FAERS Safety Report 8384605-1 (Version None)
Quarter: 2012Q2

REPORT INFORMATION
  Report Type: 
  Country: None (occurrence: None)
  Receive Date: 20120524
  Receipt Date: 20120514
  Transmission Date: 20120825
  Serious: Yes (Other)
  Sender: FDA-Public Use
  Company Number: NL-MEDIMMUNE-MEDI-0014973

PATIENT
  Age: 3 Month
  Sex: Male
  Weight: 6.5 kg

DRUGS (6)
  1. SYNAGIS [Suspect]
     Indication: HEART DISEASE CONGENITAL
     Route: 030
     Dates: start: 20110920, end: 20110920
  2. RANITIDINE [Concomitant]
  3. SYNAGIS [Suspect]
     Route: 030
     Dates: start: 20111216, end: 20111216
  4. SYNAGIS [Suspect]
     Route: 030
     Dates: start: 20111116, end: 20111116
  5. SYNAGIS [Suspect]
     Route: 030
     Dates: start: 20120113, end: 20120113
  6. SYNAGIS [Suspect]
     Route: 030
     Dates: start: 20120210, end: 20120210

REACTIONS (8)
  - TACHYPNOEA [None]
  - HEART DISEASE CONGENITAL [None]
  - VOMITING [None]
  - UPPER RESPIRATORY TRACT INFECTION [None]
  - DIARRHOEA [None]
  - SKIN DISCOLOURATION [None]
  - NASOPHARYNGITIS [None]
  - RHINORRHOEA [None]
